FAERS Safety Report 26127725 (Version 2)
Quarter: 2025Q4

REPORT INFORMATION
  Report Type: Spontaneous
  Country: EU (occurrence: EU)
  Receive Date: 20251206
  Receipt Date: 20251221
  Transmission Date: 20260117
  Serious: Yes (Hospitalization)
  Sender: BOEHRINGER INGELHEIM
  Company Number: None

PATIENT
  Age: 74 Year
  Sex: Female
  Weight: 75 kg

DRUGS (17)
  1. JARDIANCE [Suspect]
     Active Substance: EMPAGLIFLOZIN
     Indication: Product used for unknown indication
     Dates: start: 202502, end: 20251118
  2. GLYXAMBI [Suspect]
     Active Substance: EMPAGLIFLOZIN\LINAGLIPTIN
     Indication: Product used for unknown indication
     Dosage: GLYXAMBI 25/5 MG (?BERDOSIERUNG) ENGLISH TRANSALTION: OVERDOSING
     Dates: start: 202501, end: 20251118
  3. LINAGLIPTIN [Suspect]
     Active Substance: LINAGLIPTIN
     Indication: Product used for unknown indication
  4. Lexotanil 3 mg - Tabletten [Concomitant]
     Indication: Product used for unknown indication
  5. Toujeo 300 Einheiten/ml [Concomitant]
     Indication: Product used for unknown indication
  6. DONEPEZIL [Concomitant]
     Active Substance: DONEPEZIL
     Indication: Product used for unknown indication
  7. METFORMIN HYDROCHLORIDE [Concomitant]
     Active Substance: METFORMIN HYDROCHLORIDE
     Indication: Product used for unknown indication
  8. LYRICA [Concomitant]
     Active Substance: PREGABALIN
     Indication: Product used for unknown indication
  9. Hydal retard 4 mg Kapseln [Concomitant]
     Indication: Product used for unknown indication
  10. Hydal 1,3 mg Kapseln [Concomitant]
     Indication: Product used for unknown indication
  11. Durotiv 20 mg magensaftresistente Tabletten [Concomitant]
     Indication: Product used for unknown indication
  12. Dulasolan 60 mg-magensaftresistente Hartkapseln [Concomitant]
     Indication: Product used for unknown indication
  13. Candeblo 8 mg - Tabletten [Concomitant]
     Indication: Product used for unknown indication
  14. Arosuva plus Ezetimib 40 mg/10 mg Filmtabletten [Concomitant]
     Indication: Product used for unknown indication
  15. Thrombo ASS 100 mg-Filmtabletten [Concomitant]
     Indication: Product used for unknown indication
     Dosage: 0-1-0-0
  16. DULOXETINE [Concomitant]
     Active Substance: DULOXETINE
     Indication: Product used for unknown indication
     Dosage: 1-0-0-0
  17. Dekristolmin 20.000 I.E. [Concomitant]
     Indication: Product used for unknown indication

REACTIONS (8)
  - Prescribed overdose [Recovered/Resolved]
  - Diabetic ketoacidosis [Recovered/Resolved]
  - Urinary tract infection [Recovered/Resolved]
  - General physical health deterioration [Recovered/Resolved]
  - Overdose [Recovered/Resolved]
  - Urinary tract infection [Recovered/Resolved]
  - Nausea [Recovered/Resolved]
  - Vomiting [Recovered/Resolved]

NARRATIVE: CASE EVENT DATE: 20250201
